FAERS Safety Report 4815849-0 (Version None)
Quarter: 2005Q4

REPORT INFORMATION
  Report Type: 
  Country: None (occurrence: None)
  Receive Date: 20051031
  Receipt Date: 20050210
  Transmission Date: 20060501
  Serious: Yes (Hospitalization)
  Sender: FDA-Public Use
  Company Number: FR-MERCK-0502FRA00046

PATIENT
  Age: 42 Year
  Sex: Female

DRUGS (3)
  1. VIOXX [Suspect]
     Indication: POLYARTHRITIS
     Route: 048
     Dates: start: 20030701, end: 20050102
  2. FOLIC ACID [Concomitant]
     Route: 048
     Dates: start: 20030701
  3. METHOTREXATE [Concomitant]
     Indication: POLYARTHRITIS
     Route: 048
     Dates: start: 20030101

REACTIONS (3)
  - ARTERIOSPASM CORONARY [None]
  - CHEST PAIN [None]
  - MYOCARDIAL ISCHAEMIA [None]
